FAERS Safety Report 5957333-7 (Version None)
Quarter: 2008Q4

REPORT INFORMATION
  Report Type: 
  Country: None (occurrence: None)
  Receive Date: 20081118
  Receipt Date: 20081110
  Transmission Date: 20090506
  Serious: Yes (Hospitalization, Other)
  Sender: FDA-Public Use
  Company Number: US-ELI_LILLY_AND_COMPANY-US200810001068

PATIENT
  Age: 41 Year
  Sex: Male

DRUGS (5)
  1. BYETTA [Suspect]
     Indication: TYPE 2 DIABETES MELLITUS
     Dosage: 10 UG, 2/D
     Dates: start: 20060130, end: 20060228
  2. BYETTA [Suspect]
     Dosage: 10 UG, 2/D
     Dates: start: 20060228, end: 20080901
  3. GEMFIBROZIL [Concomitant]
     Indication: BLOOD TRIGLYCERIDES
     Dosage: 600 MG, 2/D
     Dates: start: 20070101
  4. LISINOPRIL [Concomitant]
     Dosage: UNK, DAILY (1/D)
     Route: 048
  5. PAROXETINE HCL [Concomitant]
     Dosage: 30 MG, UNK

REACTIONS (2)
  - BLOOD TRIGLYCERIDES INCREASED [None]
  - PANCREATITIS [None]
